FAERS Safety Report 7294215-5 (Version None)
Quarter: 2011Q1

REPORT INFORMATION
  Report Type: 
  Country: None (occurrence: None)
  Receive Date: 20110215
  Receipt Date: 20110207
  Transmission Date: 20110831
  Serious: Yes (Hospitalization)
  Sender: FDA-Public Use
  Company Number: US-US-EMD SERONO, INC.-233278J09USA

PATIENT
  Sex: Female
  Weight: 84 kg

DRUGS (9)
  1. TYLENOL [Concomitant]
     Indication: HEADACHE
     Route: 065
  2. ATENOLOL [Concomitant]
     Indication: HYPERTENSION
     Route: 048
  3. OMEPRAZOLE [Concomitant]
     Route: 048
  4. VITAMIN D [Concomitant]
     Route: 048
  5. OXYBUTYNIN EXTENDED RELEASE [Concomitant]
     Route: 048
  6. BACLOFEN [Concomitant]
     Route: 048
  7. ZETIA [Concomitant]
     Indication: HYPERLIPIDAEMIA
  8. LISINOPRIL [Concomitant]
     Indication: HYPERTENSION
     Route: 048
  9. REBIF [Suspect]
     Indication: MULTIPLE SCLEROSIS
     Route: 058
     Dates: start: 20090724

REACTIONS (17)
  - ORTHOPNOEA [None]
  - GASTROOESOPHAGEAL REFLUX DISEASE [None]
  - MUSCULAR WEAKNESS [None]
  - BLOOD UREA ABNORMAL [None]
  - BLOOD CALCIUM ABNORMAL [None]
  - HYPERLIPIDAEMIA [None]
  - BALANCE DISORDER [None]
  - UNRESPONSIVE TO STIMULI [None]
  - VENTRICULAR EXTRASYSTOLES [None]
  - HYPERTENSION [None]
  - INFECTION [None]
  - GASTRITIS [None]
  - CELLULITIS [None]
  - WHEEZING [None]
  - CIRCULATORY COLLAPSE [None]
  - HEPATIC STEATOSIS [None]
  - GAIT DISTURBANCE [None]
